FAERS Safety Report 8018586-7 (Version None)
Quarter: 2012Q1

REPORT INFORMATION
  Report Type: 
  Country: None (occurrence: None)
  Receive Date: 20120103
  Receipt Date: 20111220
  Transmission Date: 20120608
  Serious: Yes (Hospitalization)
  Sender: FDA-Public Use
  Company Number: US-UCBSA-041414

PATIENT
  Age: 32 Year
  Sex: Male
  Weight: 119.7 kg

DRUGS (21)
  1. CIPROFLOXACIN [Concomitant]
     Indication: CROHN'S DISEASE
     Dates: start: 20100701
  2. AUGMENTIN '125' [Concomitant]
     Indication: CROHN'S DISEASE
     Dates: start: 20100901
  3. PROTONIX [Concomitant]
     Indication: CROHN'S DISEASE
     Dosage: DAILY DOSE: 40 MG
  4. CALCIUM SUPPLEMENT [Concomitant]
     Indication: CROHN'S DISEASE
  5. OXYCODONE HCL [Concomitant]
     Indication: PAIN
     Dosage: 5 MG ,AS NECESSARY
     Route: 048
  6. DILAUDID [Concomitant]
     Route: 042
     Dates: start: 20110101, end: 20110101
  7. OXYCODONE HCL [Concomitant]
     Dosage: 20 MG Q4 X 5 DAYS , AS NECESSARY
     Route: 048
  8. METHOTREXATE [Concomitant]
     Indication: CROHN'S DISEASE
     Route: 058
     Dates: start: 20110401, end: 20110101
  9. METHOTREXATE [Concomitant]
     Route: 058
     Dates: start: 20110101
  10. DOCUSATE [Concomitant]
  11. BUDESONIDE [Concomitant]
     Dosage: TOTAL DAILY DOSE : 9 MG
     Route: 048
  12. CIMZIA [Suspect]
     Indication: CROHN'S DISEASE
     Route: 058
     Dates: start: 20110418
  13. PREDNISONE TAB [Concomitant]
     Indication: CROHN'S DISEASE
     Dates: start: 20061101
  14. DILAUDID [Concomitant]
     Indication: PAIN
     Route: 048
     Dates: end: 20110101
  15. FLAGYL [Concomitant]
     Indication: CROHN'S DISEASE
     Dates: start: 20100701
  16. VITAMIN D SUPPLEMENT [Concomitant]
     Indication: CROHN'S DISEASE
  17. METHOTREXATE [Concomitant]
     Dates: start: 20110101, end: 20110101
  18. FOLIC ACID [Concomitant]
     Dosage: TOTAL DALY DOSE : 1 MG
  19. OXYCODONE HCL [Concomitant]
     Dosage: 10 MG ,EVERY 6 HOURS AS NECESSARY
     Route: 048
  20. ONDANSETRON [Concomitant]
     Indication: NAUSEA
     Dosage: 4 MG Q6
  21. DILAUDID [Concomitant]
     Route: 048
     Dates: start: 20110101

REACTIONS (4)
  - FISTULA [None]
  - ANAL ABSCESS [None]
  - CROHN'S DISEASE [None]
  - ANAL FISTULA [None]
